FAERS Safety Report 5279868-5 (Version None)
Quarter: 2007Q1

REPORT INFORMATION
  Report Type: 
  Country: None (occurrence: None)
  Receive Date: 20070323
  Receipt Date: 20070323
  Transmission Date: 20070707
  Serious: No
  Sender: FDA-Public Use
  Company Number: None

PATIENT
  Age: 40 Year
  Sex: Female
  Weight: 52.6173 kg

DRUGS (2)
  1. ACYCLOVIR [Suspect]
     Indication: HERPES SIMPLEX
     Dosage: 200/500/400/800 1,200 MG DAY ORAL
     Route: 048
     Dates: start: 20001101, end: 20060701
  2. FAMVIR [Suspect]

REACTIONS (7)
  - ACNE [None]
  - BALANCE DISORDER [None]
  - BURNING SENSATION [None]
  - CONTUSION [None]
  - DEAFNESS [None]
  - NASAL CONGESTION [None]
  - TINNITUS [None]
